FAERS Safety Report 4318618-3 (Version None)
Quarter: 2004Q1

REPORT INFORMATION
  Report Type: 
  Country: None (occurrence: None)
  Receive Date: 20040315
  Receipt Date: 20040308
  Transmission Date: 20041129
  Serious: Yes (Death, Hospitalization, Congenital Anomaly)
  Sender: FDA-Public Use
  Company Number: 2004-01-1813

PATIENT
  Sex: Male

DRUGS (3)
  1. ALBUTEROL SULFATE [Suspect]
     Dosage: UNKNOWN ORAL AER INH
     Route: 048
  2. BECLOMETHASONE DIPROPIONATE [Suspect]
     Dosage: UNKNOWN INHALATION
  3. ATACAND [Suspect]
     Dosage: UNKNOWN ORAL
     Route: 048

REACTIONS (16)
  - ANURIA [None]
  - BLADDER AGENESIS [None]
  - CRANIAL SUTURES WIDENING [None]
  - DRUG EXPOSURE DURING PREGNANCY [None]
  - FLAT FEET [None]
  - FOETAL ARRHYTHMIA [None]
  - FOETAL GROWTH RETARDATION [None]
  - HYPOSPADIAS [None]
  - HYPOTENSION [None]
  - JOINT CONTRACTURE [None]
  - KIDNEY MALFORMATION [None]
  - MULTIPLE CONGENITAL ABNORMALITIES [None]
  - PREMATURE BABY [None]
  - PULMONARY CONGESTION [None]
  - RENAL HYPERTROPHY [None]
  - SKULL MALFORMATION [None]
